FAERS Safety Report 5801866-0 (Version None)
Quarter: 2008Q3

REPORT INFORMATION
  Report Type: 
  Country: None (occurrence: None)
  Receive Date: 20080707
  Receipt Date: 20080704
  Transmission Date: 20090109
  Serious: Yes (Other)
  Sender: FDA-Public Use
  Company Number: GB-BRISTOL-MYERS SQUIBB COMPANY-14250492

PATIENT
  Age: 64 Year
  Sex: Female
  Weight: 59 kg

DRUGS (3)
  1. IRBESARTAN [Suspect]
     Indication: HYPERTENSION
     Route: 048
     Dates: start: 20030901, end: 20080601
  2. ACETYLSALICYLIC ACID SRT [Concomitant]
     Indication: HYPERTENSION
     Route: 048
     Dates: start: 20050301, end: 20080301
  3. LERCANIDIPINE [Concomitant]
     Indication: HYPERTENSION
     Route: 048
     Dates: start: 20050301, end: 20080301

REACTIONS (1)
  - ULCER HAEMORRHAGE [None]
